FAERS Safety Report 10549139 (Version 1)
Quarter: 2014Q4

REPORT INFORMATION
  Report Type: Spontaneous
  Country: US (occurrence: None)
  Receive Date: 20141015
  Receipt Date: 20141015
  Transmission Date: 20150529
  Serious: Yes (Hospitalization)
  Sender: FDA-Public Use
  Company Number: 2014US003503

PATIENT
  Age: 48 Year
  Sex: Male

DRUGS (13)
  1. LORAZEPAM (LORAZEPAM) [Concomitant]
     Active Substance: LORAZEPAM
  2. NEURONTIN [Concomitant]
     Active Substance: GABAPENTIN
  3. METOPROLOL (METOPROLOL TARTRATE) [Concomitant]
     Active Substance: METOPROLOL TARTRATE
  4. ATORVASTATIN (ATORVASTATIN CALCIUM) [Concomitant]
  5. DOCUSATE SODIUM (DOCUSATE SODIUM) [Concomitant]
     Active Substance: DOCUSATE SODIUM
  6. CELEXA [Concomitant]
     Active Substance: CITALOPRAM HYDROBROMIDE
  7. FAMCICLOVIR (FAMCICLOVIR) [Concomitant]
  8. OXYCODONE (OXYCODONE) [Concomitant]
     Active Substance: OXYCODONE
  9. ICLUSIG [Suspect]
     Active Substance: PONATINIB
     Indication: ACUTE MYELOID LEUKAEMIA
     Route: 048
     Dates: start: 20140522
  10. VALIUM [Concomitant]
     Active Substance: DIAZEPAM
  11. BACLOFEN (BACLOFEN) [Concomitant]
     Active Substance: BACLOFEN
  12. ONDANSETRON. [Concomitant]
     Active Substance: ONDANSETRON
  13. SENOKOT (SENNOSIDES A+B) [Concomitant]

REACTIONS (3)
  - Liver function test abnormal [None]
  - Neoplasm progression [None]
  - Off label use [None]
